FAERS Safety Report 18180422 (Version 3)
Quarter: 2021Q2

REPORT INFORMATION
  Report Type: Spontaneous
  Country: US (occurrence: US)
  Receive Date: 20200821
  Receipt Date: 20210429
  Transmission Date: 20210717
  Serious: No
  Sender: FDA-Public Use
  Company Number: US-SA-2020SA220544

PATIENT
  Age: 73 Year
  Sex: Female

DRUGS (2)
  1. VITAMINS NOS [Concomitant]
     Active Substance: VITAMINS
  2. DUPIXENT [Suspect]
     Active Substance: DUPILUMAB
     Indication: DERMATITIS ATOPIC
     Dosage: 300 MG, QOW
     Route: 058
     Dates: start: 20200520

REACTIONS (7)
  - Product use issue [Unknown]
  - Dry skin [Unknown]
  - Sleep disorder [Unknown]
  - Muscle spasms [Unknown]
  - Rash [Unknown]
  - Pruritus [Unknown]
  - Skin tightness [Unknown]

NARRATIVE: CASE EVENT DATE: 2020
